FAERS Safety Report 9732852 (Version 1)
Quarter: 2013Q4

REPORT INFORMATION
  Report Type: Spontaneous
  Country: US (occurrence: US)
  Receive Date: 20131204
  Receipt Date: 20131204
  Transmission Date: 20140711
  Serious: No
  Sender: FDA-Public Use
  Company Number: US-GILEAD-2009-0021377

PATIENT
  Sex: Female
  Weight: 84.37 kg

DRUGS (13)
  1. LETAIRIS [Suspect]
     Indication: PULMONARY ARTERIAL HYPERTENSION
     Route: 048
     Dates: start: 20090121
  2. FUROSEMIDE [Concomitant]
  3. SPIRONOLACTONE [Concomitant]
  4. METOLAZONE [Concomitant]
  5. SOTALOL [Concomitant]
  6. AMLODIPINE BESYLATE [Concomitant]
  7. CRESTOR [Concomitant]
  8. POTASSIUM CL [Concomitant]
  9. EVISTA [Concomitant]
  10. CELEBREX [Concomitant]
  11. CARBIDOPA-LEVO [Concomitant]
  12. MAGNESIUM OXIDE [Concomitant]
  13. ADVIL [Concomitant]

REACTIONS (1)
  - Breath sounds abnormal [Unknown]
